FAERS Safety Report 18568743 (Version 3)
Quarter: 2020Q4

REPORT INFORMATION
  Report Type: Report from Study
  Country: BR (occurrence: BR)
  Receive Date: 20201202
  Receipt Date: 20201217
  Transmission Date: 20210114
  Serious: Yes (Other)
  Sender: FDA-Public Use
  Company Number: NVSC2020BR052779

PATIENT
  Age: 62 Year
  Sex: Female
  Weight: 78 kg

DRUGS (17)
  1. COSENTYX [Suspect]
     Active Substance: SECUKINUMAB
     Dosage: UNK(DOSE: 2 PENS OF 150 MG, FREQ:EVERY 28 DAYS)
     Route: 058
     Dates: start: 20181024
  2. COSENTYX [Suspect]
     Active Substance: SECUKINUMAB
     Dosage: UNK
     Route: 065
     Dates: start: 20201130
  3. SIMVASTATIN. [Concomitant]
     Active Substance: SIMVASTATIN
     Indication: BLOOD CHOLESTEROL INCREASED
     Dosage: 1 DF, QD(CIMED LABORATORY,START DATE:15 YEARS AGO)
     Route: 048
  4. COSENTYX [Suspect]
     Active Substance: SECUKINUMAB
     Dosage: UNK
     Route: 065
     Dates: start: 20200702
  5. DIPIRONE [Concomitant]
     Active Substance: METAMIZOLE SODIUM
     Indication: PSORIATIC ARTHROPATHY
     Dosage: UNK(FREQ: WHEN NECESSARY,START DATE:15 YEARS AGO)
     Route: 048
  6. DIPIRONE [Concomitant]
     Active Substance: METAMIZOLE SODIUM
     Indication: HERNIA PAIN
  7. MIOSAN [Concomitant]
     Active Substance: CYCLOBENZAPRINE
     Indication: PSORIATIC ARTHROPATHY
     Dosage: UNK(FREQ:WHEN NECESSARY,START ADTE:15 YEARS AGO,EMS LABORATORY)
     Route: 048
  8. COSENTYX [Suspect]
     Active Substance: SECUKINUMAB
     Dosage: UNK
     Route: 065
     Dates: start: 20200918
  9. LOSARTAN. [Concomitant]
     Active Substance: LOSARTAN
     Indication: HYPERTENSION
     Dosage: 1DF, BID(START DATE:MANNY YEARS AGO COULD NOT INFORM, TEUTO LABORATORY)
     Route: 048
  10. DEOCIL [Concomitant]
     Active Substance: KETOROLAC TROMETHAMINE
     Indication: PSORIATIC ARTHROPATHY
     Dosage: UNK(FREQ:WHEN NECESSARY,START DATE:15 YEARS AGO)
     Route: 048
  11. MIOSAN [Concomitant]
     Active Substance: CYCLOBENZAPRINE
     Indication: HERNIA PAIN
  12. DEOCIL [Concomitant]
     Active Substance: KETOROLAC TROMETHAMINE
     Indication: HERNIA PAIN
  13. COSENTYX [Suspect]
     Active Substance: SECUKINUMAB
     Dosage: UNK
     Route: 065
     Dates: start: 20200819
  14. COSENTYX [Suspect]
     Active Substance: SECUKINUMAB
     Dosage: 300 MG, UNKNOWN
     Route: 065
     Dates: start: 20201024
  15. HYDROCHLOROTIAZID [Concomitant]
     Indication: HYPERTENSION
     Dosage: 1 DF, QD(START DATE:MANNY YEARS AGO DID NOT INFORM,NEOQUIMICA LABARTORY)
     Route: 048
  16. COSENTYX [Suspect]
     Active Substance: SECUKINUMAB
     Indication: PSORIATIC ARTHROPATHY
     Dosage: UNK
     Route: 065
     Dates: start: 2018
  17. COSENTYX [Suspect]
     Active Substance: SECUKINUMAB
     Dosage: UNK
     Route: 065
     Dates: start: 20201020

REACTIONS (9)
  - Ear infection [Recovered/Resolved]
  - Pain [Recovered/Resolved]
  - Anxiety [Unknown]
  - Stress [Unknown]
  - Influenza [Recovered/Resolved]
  - Swelling face [Recovered/Resolved]
  - Malaise [Recovered/Resolved]
  - Sinusitis [Recovered/Resolved]
  - Pyrexia [Recovered/Resolved]

NARRATIVE: CASE EVENT DATE: 20201117
